FAERS Safety Report 5223379-X (Version None)
Quarter: 2007Q1

REPORT INFORMATION
  Report Type: 
  Country: None (occurrence: None)
  Receive Date: 20061201
  Receipt Date: 20060825
  Transmission Date: 20070707
  Serious: No
  Sender: FDA-Public Use
  Company Number: 2006PV016733

PATIENT
  Age: 50 Year
  Sex: Female
  Weight: 78.9259 kg

DRUGS (5)
  1. BYETTA [Suspect]
     Indication: DIABETES MELLITUS NON-INSULIN-DEPENDENT
     Dosage: 10 MCG;BID;SC : 5 MCG;BID;SC
     Route: 058
     Dates: start: 20050101, end: 20060101
  2. BYETTA [Suspect]
     Indication: DIABETES MELLITUS NON-INSULIN-DEPENDENT
     Dosage: 10 MCG;BID;SC : 5 MCG;BID;SC
     Route: 058
     Dates: start: 20060101
  3. LANTUS [Concomitant]
  4. HUMALOG [Concomitant]
  5. NITROGLYCERIN [Concomitant]

REACTIONS (8)
  - BLOOD GLUCOSE DECREASED [None]
  - BLOOD GLUCOSE INCREASED [None]
  - CHEST PAIN [None]
  - EARLY SATIETY [None]
  - FEELING ABNORMAL [None]
  - HYPOGLYCAEMIA [None]
  - PERIPHERAL COLDNESS [None]
  - TOOTH INJURY [None]
